FAERS Safety Report 12213099 (Version 1)
Quarter: 2016Q1

REPORT INFORMATION
  Report Type: Spontaneous
  Country: US (occurrence: None)
  Receive Date: 20160325
  Receipt Date: 20160325
  Transmission Date: 20160526
  Serious: Yes (Disabling)
  Sender: FDA-Public Use
  Company Number: None

PATIENT
  Age: 50 Year
  Sex: Female
  Weight: 65.77 kg

DRUGS (1)
  1. COMPLETE CARE TARTAR CONTROL PLUS WHITENING BAKING SODA AND PEROXIDE [Suspect]
     Active Substance: SODIUM FLUORIDE
     Indication: DENTAL CARE
     Route: 048
     Dates: start: 20111215, end: 20120101

REACTIONS (10)
  - Tongue coated [None]
  - Gingival swelling [None]
  - Gingival erythema [None]
  - Ageusia [None]
  - Oral candidiasis [None]
  - Glossodynia [None]
  - Dry mouth [None]
  - Oral pain [None]
  - Oral mucosal blistering [None]
  - Chapped lips [None]

NARRATIVE: CASE EVENT DATE: 20120101
